FAERS Safety Report 7411483-7 (Version None)
Quarter: 2011Q2

REPORT INFORMATION
  Report Type: 
  Country: None (occurrence: None)
  Receive Date: 20110413
  Receipt Date: 20110331
  Transmission Date: 20111010
  Serious: Yes (Other)
  Sender: FDA-Public Use
  Company Number: PHHY2010AU24300

PATIENT
  Sex: Female
  Weight: 99 kg

DRUGS (12)
  1. ENALAPRIL MALEATE [Concomitant]
     Dosage: 5 MG, QD
  2. CLOZARIL [Suspect]
     Indication: SCHIZOPHRENIA
     Dosage: 475 MG DAILY
     Route: 048
     Dates: start: 19930701
  3. CLOZARIL [Suspect]
     Dosage: 400 MG PER DAY
     Route: 048
     Dates: start: 20060101
  4. SIMVASTATIN [Concomitant]
     Indication: HYPERLIPIDAEMIA
     Dosage: 40 MG DAILY
  5. DIAMICRON [Concomitant]
     Dosage: 60 MG DAILY
  6. FRUSEMIDE [Concomitant]
  7. METFORMIN [Concomitant]
     Dosage: 2000 MG, QD
  8. ACTRAPID [Concomitant]
  9. METFORMIN [Concomitant]
     Indication: TYPE 2 DIABETES MELLITUS
     Dosage: 1 G, BID
  10. GLICLAZIDE [Concomitant]
  11. COLECALCIFEROL [Concomitant]
  12. LANTUS [Concomitant]

REACTIONS (18)
  - CARDIAC FAILURE CONGESTIVE [None]
  - RALES [None]
  - CHEST PAIN [None]
  - BLOOD GLUCOSE INCREASED [None]
  - LDL/HDL RATIO DECREASED [None]
  - BLOOD CREATININE INCREASED [None]
  - ELECTROCARDIOGRAM QT PROLONGED [None]
  - RENAL IMPAIRMENT [None]
  - BLOOD ALKALINE PHOSPHATASE INCREASED [None]
  - WHITE BLOOD CELL COUNT INCREASED [None]
  - NEUTROPHIL COUNT INCREASED [None]
  - DYSPNOEA [None]
  - OEDEMA [None]
  - SPEECH DISORDER [None]
  - FLUID RETENTION [None]
  - CARDIOMYOPATHY [None]
  - GLYCOSYLATED HAEMOGLOBIN INCREASED [None]
  - BLOOD MAGNESIUM DECREASED [None]
